FAERS Safety Report 5045573-3 (Version None)
Quarter: 2006Q3

REPORT INFORMATION
  Report Type: 
  Country: None (occurrence: None)
  Receive Date: 20060707
  Receipt Date: 20060619
  Transmission Date: 20061208
  Serious: Yes (Other)
  Sender: FDA-Public Use
  Company Number: JP-GILEAD-2006-0009757

PATIENT
  Sex: Female
  Weight: 69 kg

DRUGS (8)
  1. HEPSERA [Suspect]
     Indication: HEPATITIS B
     Route: 048
     Dates: start: 20040219, end: 20040617
  2. HEPSERA [Suspect]
     Indication: HEPATIC CIRRHOSIS
  3. ZEFFIX [Suspect]
     Indication: HEPATIC CIRRHOSIS
     Route: 048
     Dates: start: 20040617
  4. ZEFFIX [Suspect]
     Route: 048
     Dates: start: 20010904, end: 20040318
  5. LACTIC-ACID-PRODUCING ORGANISMS [Concomitant]
  6. URSO [Concomitant]
  7. GLAKAY [Concomitant]
  8. ZYRTEC [Concomitant]

REACTIONS (3)
  - DIABETES MELLITUS [None]
  - DRUG INEFFECTIVE [None]
  - HYPOGLYCAEMIA [None]
